FAERS Safety Report 4634081-7 (Version None)
Quarter: 2005Q2

REPORT INFORMATION
  Report Type: 
  Country: None (occurrence: None)
  Receive Date: 20050413
  Receipt Date: 20050208
  Transmission Date: 20051028
  Serious: Yes (Death, Life-Threatening)
  Sender: FDA-Public Use
  Company Number: US-GLAXOSMITHKLINE-A0544500A

PATIENT
  Age: 11 Year
  Sex: Male
  Weight: 58.2 kg

DRUGS (4)
  1. WELLBUTRIN XL [Suspect]
     Indication: DEPRESSION
     Dosage: 150MG PER DAY
     Route: 048
     Dates: start: 20031201
  2. STRATTERA [Suspect]
     Indication: DEPRESSION
     Dosage: 40MG PER DAY
  3. AMPHETAMINE [Suspect]
     Route: 065
  4. ADDERALL 20 [Concomitant]
     Dates: end: 20040901

REACTIONS (5)
  - CARDIO-RESPIRATORY ARREST [None]
  - DRUG INEFFECTIVE [None]
  - FATIGUE [None]
  - FEELING DRUNK [None]
  - LETHARGY [None]
